FAERS Safety Report 9917083 (Version 2)
Quarter: 2014Q2

REPORT INFORMATION
  Report Type: Spontaneous
  Country: US (occurrence: US)
  Receive Date: 20140221
  Receipt Date: 20140414
  Transmission Date: 20141212
  Serious: Yes (Hospitalization, Other)
  Sender: FDA-Public Use
  Company Number: US-UCBSA-112653

PATIENT
  Age: 59 Year
  Sex: Female
  Weight: 87.9 kg

DRUGS (13)
  1. CIMZIA [Suspect]
     Indication: CROHN^S DISEASE
     Dosage: DOSE MISSED IN JUL, AUG 2013 AND MAR 2014
     Route: 058
     Dates: start: 201304
  2. FOLIC ACID [Concomitant]
  3. METHOTREXATE [Concomitant]
     Indication: CROHN^S DISEASE
  4. PROZAC [Concomitant]
  5. ABLIFIY [Concomitant]
  6. GABEPENTIN [Concomitant]
     Indication: NERVE INJURY
  7. KLOR [Concomitant]
     Indication: MINERAL SUPPLEMENTATION
  8. HYDROCODONE [Concomitant]
     Indication: MUSCULOSKELETAL PAIN
  9. CARVEDILOL [Concomitant]
  10. PLAVIC [Concomitant]
     Indication: CEREBROVASCULAR ACCIDENT
  11. LIPITOR [Concomitant]
     Indication: BLOOD CHOLESTEROL INCREASED
  12. NORVASC [Concomitant]
  13. VESICARE [Concomitant]
     Indication: URINARY INCONTINENCE

REACTIONS (3)
  - Cerebrovascular accident [Not Recovered/Not Resolved]
  - Fall [Not Recovered/Not Resolved]
  - Joint dislocation [Not Recovered/Not Resolved]
